FAERS Safety Report 16493692 (Version 1)
Quarter: 2019Q2

REPORT INFORMATION
  Report Type: Spontaneous
  Country: US (occurrence: US)
  Receive Date: 20190628
  Receipt Date: 20190628
  Transmission Date: 20190711
  Serious: Yes (Other)
  Sender: FDA-Public Use
  Company Number: US-PFIZER INC-2019265676

PATIENT
  Age: 52 Year
  Sex: Female
  Weight: 93.89 kg

DRUGS (1)
  1. XANAX [Suspect]
     Active Substance: ALPRAZOLAM
     Indication: IMPAIRED DRIVING ABILITY
     Dosage: HALF TABLET
     Route: 048

REACTIONS (4)
  - Pain [Unknown]
  - Off label use [Unknown]
  - Tissue rupture [Unknown]
  - Product use in unapproved indication [Unknown]
